FAERS Safety Report 21262920 (Version 1)
Quarter: 2022Q3

REPORT INFORMATION
  Report Type: Spontaneous
  Country: DE (occurrence: None)
  Receive Date: 20220828
  Receipt Date: 20220828
  Transmission Date: 20221026
  Serious: Yes (Other)
  Sender: FDA-Public Use
  Company Number: DE-ROCHE-3166239

PATIENT
  Age: 63 Year
  Sex: Male

DRUGS (3)
  1. TECENTRIQ [Suspect]
     Active Substance: ATEZOLIZUMAB
     Indication: Non-small cell lung cancer
     Dosage: IN COMBINATION WITH PACLITAXEL AND CARBOPLATIN
     Route: 065
     Dates: start: 20220405
  2. PACLITAXEL [Suspect]
     Active Substance: PACLITAXEL
     Indication: Non-small cell lung cancer
     Dosage: IN COMBINATION WITH TECENTRIQ AND CARBOPLATIN
     Route: 065
     Dates: start: 20220405
  3. CARBOPLATIN [Suspect]
     Active Substance: CARBOPLATIN
     Indication: Non-small cell lung cancer
     Dosage: DOSE 5 AUC, IN COMBINATION WITH TECENTRIQ AND PACLITAXEL.
     Route: 065
     Dates: start: 20220405

REACTIONS (3)
  - Off label use [Unknown]
  - Off label use [Unknown]
  - Metastases to bone [Unknown]

NARRATIVE: CASE EVENT DATE: 20220405
